FAERS Safety Report 22734801 (Version 3)
Quarter: 2023Q4

REPORT INFORMATION
  Report Type: Spontaneous
  Country: US (occurrence: US)
  Receive Date: 20230721
  Receipt Date: 20231016
  Transmission Date: 20240109
  Serious: No
  Sender: FDA-Public Use
  Company Number: US-BRISTOL-MYERS SQUIBB COMPANY-2023-102725

PATIENT
  Age: 71 Year
  Sex: Male

DRUGS (2)
  1. REVLIMID [Suspect]
     Active Substance: LENALIDOMIDE
     Indication: Plasma cell myeloma
     Route: 048
  2. REVLIMID [Suspect]
     Active Substance: LENALIDOMIDE
     Indication: Anaemia
     Dosage: QD FOR 21 DAYS AND 7 DAYS OFF
     Route: 048

REACTIONS (5)
  - Treatment noncompliance [Unknown]
  - Product dose omission issue [Unknown]
  - Asthenia [Unknown]
  - Gout [Unknown]
  - Gouty arthritis [Unknown]

NARRATIVE: CASE EVENT DATE: 20230720
